FAERS Safety Report 21380657 (Version 8)
Quarter: 2023Q2

REPORT INFORMATION
  Report Type: Report from Study
  Country: CN (occurrence: CN)
  Receive Date: 20220927
  Receipt Date: 20230612
  Transmission Date: 20230721
  Serious: Yes (Hospitalization, Other)
  Sender: FDA-Public Use
  Company Number: CN-FOSUNKITE-FOSUNKITE-20220373

PATIENT
  Age: 69 Year
  Sex: Female

DRUGS (15)
  1. AXICABTAGENE CILOLEUCEL [Suspect]
     Active Substance: AXICABTAGENE CILOLEUCEL
     Indication: Diffuse large B-cell lymphoma
     Dosage: APPROX 68 ML
     Route: 041
     Dates: start: 20220120, end: 20220120
  2. FLUDARABINE [Suspect]
     Active Substance: FLUDARABINE PHOSPHATE
     Indication: Lymphodepletion
     Dosage: 37.5 MG, QD
     Route: 041
     Dates: start: 20220115, end: 20220116
  3. CYCLOPHOSPHAMIDE [Concomitant]
     Active Substance: CYCLOPHOSPHAMIDE
     Indication: Lymphodepletion
     Dosage: 0.45 G, QD
     Route: 041
     Dates: start: 20220115, end: 20220116
  4. CYCLOPHOSPHAMIDE [Concomitant]
     Active Substance: CYCLOPHOSPHAMIDE
     Indication: Diffuse large B-cell lymphoma stage IV
  5. METFORMIN HYDROCHLORIDE [Concomitant]
     Active Substance: METFORMIN HYDROCHLORIDE
     Indication: Diabetes mellitus
     Dosage: 0.5 G, TID
     Route: 048
     Dates: start: 200012
  6. INSULIN NOS [Concomitant]
     Active Substance: INSULIN NOS
     Indication: Diabetes mellitus
     Dosage: UNK UNK, QD
     Route: 058
     Dates: start: 200012
  7. BICYCLOL [Concomitant]
     Active Substance: BICYCLOL
     Indication: Hepatic function abnormal
     Dosage: 25 MG, TID
     Route: 048
  8. BICYCLOL [Concomitant]
     Active Substance: BICYCLOL
     Dosage: 25 MG, TID
     Route: 048
  9. TONG XIN LUO [Concomitant]
     Indication: Coronary artery disease
     Dosage: 0.26 G, TID
     Route: 048
  10. HERBALS [Concomitant]
     Active Substance: HERBALS
     Indication: Coronary artery disease
     Dosage: 22.5 MG, TID
     Route: 048
  11. URSODIOL [Concomitant]
     Active Substance: URSODIOL
     Indication: Hepatic function abnormal
     Dosage: 20 MG, TID
     Route: 048
  12. URSODIOL [Concomitant]
     Active Substance: URSODIOL
     Dosage: 20 MG, TID
     Route: 048
  13. BACILLUS SUBTILIS;ENTEROCOCCUS FAECALIS [Concomitant]
     Indication: Gastrointestinal disorder
     Dosage: 0.25 G, TID
     Route: 048
  14. BACILLUS SUBTILIS;ENTEROCOCCUS FAECALIS [Concomitant]
     Dosage: 0.25 G, TID
     Route: 048
  15. BACILLUS SUBTILIS;ENTEROCOCCUS FAECIUM [Concomitant]
     Indication: Gastrointestinal disorder
     Dosage: 0.25 G, TID
     Route: 048

REACTIONS (3)
  - Full blood count decreased [Not Recovered/Not Resolved]
  - Portal vein thrombosis [Recovering/Resolving]
  - Hypogammaglobulinaemia [Not Recovered/Not Resolved]

NARRATIVE: CASE EVENT DATE: 20220704
